FAERS Safety Report 20298615 (Version 1)
Quarter: 2022Q1

REPORT INFORMATION
  Report Type: Spontaneous
  Country: JP (occurrence: JP)
  Receive Date: 20220105
  Receipt Date: 20220105
  Transmission Date: 20220423
  Serious: Yes (Other)
  Sender: FDA-Public Use
  Company Number: JP-SA-SAC20220103001127

PATIENT
  Age: 32 Year
  Sex: Female

DRUGS (12)
  1. XYZAL [Suspect]
     Active Substance: LEVOCETIRIZINE DIHYDROCHLORIDE
     Indication: Urticaria
     Dosage: 5 MG; QD
     Route: 065
     Dates: start: 20170623, end: 20201208
  2. XYZAL [Suspect]
     Active Substance: LEVOCETIRIZINE DIHYDROCHLORIDE
     Indication: Abdominal pain upper
  3. EPZICOM [Suspect]
     Active Substance: ABACAVIR SULFATE\LAMIVUDINE
     Indication: HIV infection
     Dosage: 1 DF; QD
     Dates: start: 20201112, end: 20201210
  4. TIVICAY [Suspect]
     Active Substance: DOLUTEGRAVIR SODIUM
     Indication: HIV infection
     Dosage: 50 MG, QD; ORAL
     Route: 048
     Dates: start: 20170617, end: 20201111
  5. DARUNAVIR [Suspect]
     Active Substance: DARUNAVIR
     Indication: HIV infection
     Dosage: 1 DF; QD
     Dates: start: 20201112, end: 20201210
  6. NORVIR [Suspect]
     Active Substance: RITONAVIR
     Indication: HIV infection
     Dosage: 1 DF; QD
     Dates: start: 20201112, end: 20201210
  7. DESCOVY [Concomitant]
     Active Substance: EMTRICITABINE\TENOFOVIR ALAFENAMIDE FUMARATE
     Dosage: UNK
  8. MAGNESIUM OXIDE [Concomitant]
     Active Substance: MAGNESIUM OXIDE
     Dosage: UNK
     Route: 065
  9. AMITIZA [Concomitant]
     Active Substance: LUBIPROSTONE
     Dosage: UNK
     Route: 065
  10. CALONAL [Concomitant]
     Active Substance: ACETAMINOPHEN
     Dosage: UNK
  11. TRANEXAMIC ACID [Concomitant]
     Active Substance: TRANEXAMIC ACID
     Dosage: UNK
     Route: 065
  12. PL [Concomitant]
     Active Substance: ACETAMINOPHEN\CAFFEINE\PROMETHAZINE\SALICYLAMIDE
     Dosage: UNK
     Route: 065

REACTIONS (5)
  - Premature delivery [Unknown]
  - Abdominal pain upper [Recovered/Resolved]
  - Maternal exposure before pregnancy [Unknown]
  - Maternal exposure during pregnancy [Unknown]
  - Product use issue [Unknown]

NARRATIVE: CASE EVENT DATE: 20201111
